FAERS Safety Report 9164913 (Version 2)
Quarter: 2013Q1

REPORT INFORMATION
  Report Type: Spontaneous
  Country: JP (occurrence: JP)
  Receive Date: 20130315
  Receipt Date: 20130322
  Transmission Date: 20140127
  Serious: Yes (Other)
  Sender: FDA-Public Use
  Company Number: JP-PFIZER INC-2013083601

PATIENT
  Sex: 0

DRUGS (2)
  1. SULFASALAZINE [Suspect]
  2. ASACOL [Suspect]
     Dosage: UNK

REACTIONS (2)
  - Arthralgia [Recovered/Resolved]
  - C-reactive protein increased [Recovered/Resolved]
